FAERS Safety Report 4627822-6 (Version None)
Quarter: 2005Q2

REPORT INFORMATION
  Report Type: 
  Country: None (occurrence: None)
  Receive Date: 20050406
  Receipt Date: 20050329
  Transmission Date: 20051028
  Serious: Yes (Other)
  Sender: FDA-Public Use
  Company Number: 200510951JP

PATIENT
  Age: 71 Year
  Sex: Female

DRUGS (2)
  1. LANTUS [Suspect]
     Route: 058
  2. OPTIPEN (INSULIN PUMP) [Suspect]

REACTIONS (3)
  - EYE DISCHARGE [None]
  - EYE PRURITUS [None]
  - EYELID DISORDER [None]
